FAERS Safety Report 4468127-6 (Version None)
Quarter: 2004Q4

REPORT INFORMATION
  Report Type: 
  Country: None (occurrence: None)
  Receive Date: 20041001
  Receipt Date: 20040916
  Transmission Date: 20050328
  Serious: Yes (Other)
  Sender: FDA-Public Use
  Company Number: 2004234778JP

PATIENT

DRUGS (2)
  1. MEDROL [Suspect]
     Indication: MUSCULOSKELETAL PAIN
     Dosage: 1 MG, BID, ORAL
     Route: 048
  2. METALCAPTASE (PENICILLAMINE) [Concomitant]

REACTIONS (2)
  - LOSS OF CONSCIOUSNESS [None]
  - SEPSIS [None]
